FAERS Safety Report 9270869 (Version 3)
Quarter: 2013Q4

REPORT INFORMATION
  Report Type: Spontaneous
  Country: US (occurrence: US)
  Receive Date: 20130503
  Receipt Date: 20131120
  Transmission Date: 20140711
  Serious: Yes (Hospitalization)
  Sender: FDA-Public Use
  Company Number: US-B.I. PHARMACEUTICALS,INC./RIDGEFIELD-2013-BI-12204BP

PATIENT
  Age: 75 Year
  Sex: Male

DRUGS (2)
  1. PRADAXA [Suspect]
     Indication: ANTICOAGULANT THERAPY
     Dates: start: 20110524
  2. PRADAXA [Suspect]
     Indication: ATRIAL FIBRILLATION

REACTIONS (5)
  - Haemorrhagic anaemia [Unknown]
  - Pulmonary alveolar haemorrhage [Unknown]
  - Haemoptysis [Unknown]
  - Glomerulonephritis [Unknown]
  - Vasculitis [Unknown]
